FAERS Safety Report 8834199 (Version 6)
Quarter: 2015Q1

REPORT INFORMATION
  Report Type: Spontaneous
  Country: US (occurrence: US)
  Receive Date: 20121010
  Receipt Date: 20150115
  Transmission Date: 20150721
  Serious: Yes (Hospitalization, Disabling, Other)
  Sender: FDA-Public Use
  Company Number: US-009507513-1210USA002674

PATIENT
  Sex: Female

DRUGS (4)
  1. FOSAMAX [Suspect]
     Active Substance: ALENDRONATE SODIUM
     Dosage: 70 MG, UNK
     Route: 048
     Dates: end: 201006
  2. FOSAMAX [Suspect]
     Active Substance: ALENDRONATE SODIUM
     Dosage: UNK
     Route: 048
     Dates: start: 2000, end: 201006
  3. FOSAMAX PLUS D [Suspect]
     Active Substance: ALENDRONATE SODIUM\CHOLECALCIFEROL
     Indication: OSTEOPOROSIS
     Dosage: 70 MG, QW
     Route: 048
     Dates: start: 2000, end: 201003
  4. ALENDRONATE SODIUM. [Suspect]
     Active Substance: ALENDRONATE SODIUM
     Dosage: UNK
     Route: 048
     Dates: start: 2000, end: 201006

REACTIONS (17)
  - Femur fracture [Not Recovered/Not Resolved]
  - Diabetes mellitus [Unknown]
  - Gastritis [Unknown]
  - Femur fracture [Unknown]
  - Hypertension [Unknown]
  - Carotid artery stent insertion [Unknown]
  - Skeletal injury [Not Recovered/Not Resolved]
  - Hypovitaminosis [Unknown]
  - Balance disorder [Unknown]
  - Intramedullary rod insertion [Unknown]
  - Low turnover osteopathy [Not Recovered/Not Resolved]
  - Surgery [Unknown]
  - Impaired healing [Unknown]
  - Musculoskeletal pain [Unknown]
  - Blood cholesterol increased [Unknown]
  - Flank pain [Unknown]
  - Endodontic procedure [Unknown]

NARRATIVE: CASE EVENT DATE: 2003
